FAERS Safety Report 9634504 (Version 2)
Quarter: 2013Q4

REPORT INFORMATION
  Report Type: Spontaneous
  Country: US (occurrence: US)
  Receive Date: 20131021
  Receipt Date: 20131021
  Transmission Date: 20140711
  Serious: No
  Sender: FDA-Public Use
  Company Number: US-PURDUE-USA-2013-0100641

PATIENT
  Age: 55 Year
  Sex: Female

DRUGS (1)
  1. BUTRANS [Suspect]
     Indication: ARTHRALGIA
     Dosage: 20 MCG/HR, UNK
     Route: 062
     Dates: start: 201307, end: 20130821

REACTIONS (8)
  - Application site haemorrhage [Not Recovered/Not Resolved]
  - Product adhesion issue [Unknown]
  - Application site pruritus [Not Recovered/Not Resolved]
  - Application site irritation [Not Recovered/Not Resolved]
  - Application site erythema [Not Recovered/Not Resolved]
  - Application site pain [Not Recovered/Not Resolved]
  - Application site perspiration [Not Recovered/Not Resolved]
  - Medication residue present [Not Recovered/Not Resolved]
